FAERS Safety Report 17138292 (Version 1)
Quarter: 2019Q4

REPORT INFORMATION
  Report Type: Spontaneous
  Country: DE (occurrence: DE)
  Receive Date: 20191211
  Receipt Date: 20191211
  Transmission Date: 20200122
  Serious: Yes (Other)
  Sender: FDA-Public Use
  Company Number: DE-AMGEN-DEUSP2019203151

PATIENT

DRUGS (12)
  1. FILGRASTIM [Suspect]
     Active Substance: FILGRASTIM
     Indication: CYCLIC NEUTROPENIA
  2. FILGRASTIM [Suspect]
     Active Substance: FILGRASTIM
     Indication: INFANTILE GENETIC AGRANULOCYTOSIS
     Dosage: UNK
     Route: 065
  3. PEGFILGRASTIM [Suspect]
     Active Substance: PEGFILGRASTIM
     Indication: AUTOIMMUNE NEUTROPENIA
  4. PEGFILGRASTIM [Suspect]
     Active Substance: PEGFILGRASTIM
     Indication: CYCLIC NEUTROPENIA
  5. FILGRASTIM [Suspect]
     Active Substance: FILGRASTIM
     Indication: AUTOIMMUNE NEUTROPENIA
  6. PEGFILGRASTIM [Suspect]
     Active Substance: PEGFILGRASTIM
     Indication: IDIOPATHIC NEUTROPENIA
  7. LENOGRASTIM [Concomitant]
     Active Substance: LENOGRASTIM
     Indication: AUTOIMMUNE NEUTROPENIA
  8. LENOGRASTIM [Concomitant]
     Active Substance: LENOGRASTIM
     Indication: INFANTILE GENETIC AGRANULOCYTOSIS
     Dosage: UNK
  9. LENOGRASTIM [Concomitant]
     Active Substance: LENOGRASTIM
     Indication: IDIOPATHIC NEUTROPENIA
  10. PEGFILGRASTIM [Suspect]
     Active Substance: PEGFILGRASTIM
     Indication: INFANTILE GENETIC AGRANULOCYTOSIS
     Dosage: UNK
     Route: 065
  11. FILGRASTIM [Suspect]
     Active Substance: FILGRASTIM
     Indication: IDIOPATHIC NEUTROPENIA
  12. LENOGRASTIM [Concomitant]
     Active Substance: LENOGRASTIM
     Indication: CYCLIC NEUTROPENIA

REACTIONS (2)
  - Product use in unapproved indication [Unknown]
  - Leukaemia [Unknown]
